FAERS Safety Report 23550086 (Version 1)
Quarter: 2024Q1

REPORT INFORMATION
  Report Type: Spontaneous
  Country: US (occurrence: US)
  Receive Date: 20240221
  Receipt Date: 20240221
  Transmission Date: 20240409
  Serious: No
  Sender: FDA-Public Use
  Company Number: US-AMGEN-USASP2024033653

PATIENT
  Age: 43 Year
  Sex: Male

DRUGS (1)
  1. MVASI [Suspect]
     Active Substance: BEVACIZUMAB-AWWB
     Indication: Brain neoplasm
     Dosage: UNK(DOSE ORDERED:  1200 MG/DOSE REQUESTED:  3X400 MG)
     Route: 065

REACTIONS (1)
  - Hospice care [Unknown]

NARRATIVE: CASE EVENT DATE: 20240124
